FAERS Safety Report 15713139 (Version 2)
Quarter: 2019Q1

REPORT INFORMATION
  Report Type: Spontaneous
  Country: JP (occurrence: JP)
  Receive Date: 20181212
  Receipt Date: 20190218
  Transmission Date: 20190417
  Serious: Yes (Other)
  Sender: FDA-Public Use
  Company Number: JP-ROCHE-2228230

PATIENT
  Age: 85 Year
  Sex: Female
  Weight: 56 kg

DRUGS (4)
  1. TRAMCET [Concomitant]
     Active Substance: ACETAMINOPHEN\TRAMADOL
     Route: 065
     Dates: start: 20150415, end: 20181023
  2. BONVIVA [Suspect]
     Active Substance: IBANDRONATE SODIUM
     Indication: OSTEOPOROSIS POSTMENOPAUSAL
     Dosage: 0.0333 MG
     Route: 042
     Dates: start: 20150420, end: 20170803
  3. ELCITONIN [Concomitant]
     Active Substance: ELCATONIN
     Route: 030
     Dates: start: 20150323, end: 20170803
  4. ARTZ DISPO [Concomitant]
     Dosage: DOSAGE FORM
     Route: 014
     Dates: start: 20150323, end: 20181023

REACTIONS (1)
  - Osteonecrosis [Unknown]

NARRATIVE: CASE EVENT DATE: 20160509
